FAERS Safety Report 10167755 (Version 1)
Quarter: 2014Q2

REPORT INFORMATION
  Report Type: Spontaneous
  Country: FR (occurrence: FR)
  Receive Date: 20140512
  Receipt Date: 20140512
  Transmission Date: 20141212
  Serious: Yes (Hospitalization, Other)
  Sender: FDA-Public Use
  Company Number: FR-ABBVIE-14P-056-1236281-00

PATIENT
  Age: 20 Year
  Sex: Female

DRUGS (1)
  1. ZECLAR 500 MG [Suspect]
     Indication: LUNG DISORDER
     Route: 048
     Dates: start: 20140408, end: 20140410

REACTIONS (4)
  - Incorrect dose administered [Recovered/Resolved]
  - Medication error [Recovered/Resolved]
  - Nausea [Recovered/Resolved]
  - Vertigo [Recovered/Resolved]
